FAERS Safety Report 8447577-7 (Version None)
Quarter: 2012Q2

REPORT INFORMATION
  Report Type: 
  Country: None (occurrence: None)
  Receive Date: 20120619
  Receipt Date: 20120613
  Transmission Date: 20120825
  Serious: No
  Sender: FDA-Public Use
  Company Number: US-B.I. PHARMACEUTICALS,INC./RIDGEFIELD-2012-BP-13887PF

PATIENT
  Sex: Female

DRUGS (3)
  1. ANTIBIOTICS [Suspect]
  2. SPIRIVA [Suspect]
  3. MUCINEX [Suspect]

REACTIONS (1)
  - MALAISE [None]
